FAERS Safety Report 19242864 (Version 1)
Quarter: 2021Q2

REPORT INFORMATION
  Report Type: Other
  Country: US (occurrence: US)
  Receive Date: 20210511
  Receipt Date: 20210511
  Transmission Date: 20210717
  Serious: Yes (Other)
  Sender: FDA-Public Use
  Company Number: US-ROCHE-2824928

PATIENT
  Age: 64 Year
  Sex: Male
  Weight: 72.64 kg

DRUGS (30)
  1. ELIQUIS [Concomitant]
     Active Substance: APIXABAN
     Route: 048
  2. ASPIRIN. [Concomitant]
     Active Substance: ASPIRIN
     Dosage: TAKE 81 MG BY MOUTH EVERY NIGHT AT BEDTIME
     Route: 048
  3. SINEMET [Concomitant]
     Active Substance: CARBIDOPA\LEVODOPA
     Dosage: 25?100 MG TAKE 1 TABLET BY MOUTH EVERY NIGHT AT BEDTIME
     Route: 048
  4. COZAAR [Concomitant]
     Active Substance: LOSARTAN POTASSIUM
     Dosage: TAKE 1 TABLET
  5. ZOCOR [Concomitant]
     Active Substance: SIMVASTATIN
     Dosage: TAKE 1 TABLET
     Route: 048
  6. FLOMAX [Concomitant]
     Active Substance: TAMSULOSIN HYDROCHLORIDE
     Route: 048
  7. BUPROPION. [Concomitant]
     Active Substance: BUPROPION
     Indication: DEPRESSION
     Route: 048
  8. SIMVASTATIN. [Concomitant]
     Active Substance: SIMVASTATIN
     Indication: BLOOD CHOLESTEROL INCREASED
     Route: 048
  9. WELLBUTRIN SR [Concomitant]
     Active Substance: BUPROPION HYDROCHLORIDE
     Route: 048
  10. HYDROCORT (HYDROCORTISONE) [Concomitant]
     Active Substance: HYDROCORTISONE
     Indication: HYPERTENSION
     Route: 048
  11. TYLENOL [Concomitant]
     Active Substance: ACETAMINOPHEN
     Dosage: TAKE 1?2 TABLETS BY MOUTH EVERY 4 HOURS NEEDED
     Route: 048
  12. LEXAPRO [Concomitant]
     Active Substance: ESCITALOPRAM OXALATE
     Route: 048
  13. NEXIUM [Concomitant]
     Active Substance: ESOMEPRAZOLE MAGNESIUM
     Dosage: TAKE 40 MG BY MOUTH TWICE DAILY BEFORE BREAKFAST AND DINNER/SUPPER
  14. DELTASONE [Concomitant]
     Active Substance: PREDNISONE
     Dosage: TAKE 2 TABLETS
     Route: 048
  15. DELTASONE [Concomitant]
     Active Substance: PREDNISONE
     Dosage: TAKE 1 TABLET
     Route: 048
  16. KLONOPIN [Suspect]
     Active Substance: CLONAZEPAM
     Indication: TREMOR
     Dosage: AT NIGHT
     Route: 048
  17. MILK OF MAGNESIA [Concomitant]
     Active Substance: MAGNESIUM HYDROXIDE
     Indication: CONSTIPATION
     Dosage: 400 MG/5 ML TAKE 30 ML BY MOUTH ONCE DAILY AS NEEDED FOR CONSTIPATION HOLD IF CRCL IS LESS THAN 30
     Route: 048
  18. DELTASONE [Concomitant]
     Active Substance: PREDNISONE
     Dosage: TAKE 1 TABLET
     Route: 048
  19. OCREVUS [Suspect]
     Active Substance: OCRELIZUMAB
     Indication: SECONDARY PROGRESSIVE MULTIPLE SCLEROSIS
     Route: 042
     Dates: start: 202103
  20. MELOXICAM. [Concomitant]
     Active Substance: MELOXICAM
     Indication: HEADACHE
     Route: 048
  21. GLUCAGEN [Concomitant]
     Active Substance: GLUCAGON HYDROCHLORIDE
     Indication: HYPOGLYCAEMIA
     Dosage: INJECT 1 MG INTO THE MUSCLE ONCE DAILY AS NEEDED FOR HYPOGLYCEMIA
     Route: 030
  22. LIDOCARE [Concomitant]
     Dosage: PLACE 1?2 PATCHES ONTO THE SKIN EVERY DAY FOR 15 DAYS
  23. LOSARTAN. [Concomitant]
     Active Substance: LOSARTAN
     Indication: HYPERTENSION
     Dosage: IN MORNING
     Route: 048
  24. MACRODANTIN [Concomitant]
     Active Substance: NITROFURANTOIN
     Dosage: TAKE 1 CAPSULE
     Route: 048
  25. DELTASONE [Concomitant]
     Active Substance: PREDNISONE
     Dosage: TAKE 3 TABLETS
     Route: 048
  26. NEXIUM [Concomitant]
     Active Substance: ESOMEPRAZOLE MAGNESIUM
     Indication: DYSPEPSIA
     Route: 048
  27. DULCOLAX (BISACODYL) [Concomitant]
     Active Substance: BISACODYL
     Indication: CONSTIPATION
     Dosage: INSERT 1 SUPPOSITORY RECTALLY EVERY 4 DAYS AS NEEDED FOR CONSTIPATION
     Route: 054
  28. MIRALAX [Concomitant]
     Active Substance: POLYETHYLENE GLYCOL 3350
     Dosage: AS NEEDED
     Route: 048
  29. OXYGEN. [Concomitant]
     Active Substance: OXYGEN
     Dosage: INSTILL 2 L INTO NOSTRILS AS NEEDED FOR RESPIRATORY DISTRESS AND OR/ CHEST PAIN
  30. CARBIDOPA LEVODOPA [Concomitant]
     Active Substance: CARBIDOPA\LEVODOPA
     Indication: TREMOR
     Route: 048

REACTIONS (2)
  - Urinary tract infection [Not Recovered/Not Resolved]
  - Off label use [Unknown]

NARRATIVE: CASE EVENT DATE: 202103
